FAERS Safety Report 7528190-2 (Version None)
Quarter: 2011Q2

REPORT INFORMATION
  Report Type: 
  Country: None (occurrence: None)
  Receive Date: 20110607
  Receipt Date: 20100817
  Transmission Date: 20111010
  Serious: No
  Sender: FDA-Public Use
  Company Number: US-ASTRAZENECA-2010SE39309

PATIENT
  Sex: Male

DRUGS (6)
  1. BLOOD PRESSURE MEDICATION [Concomitant]
     Dosage: UNKNOWN
  2. SYNTHROID [Concomitant]
     Dosage: UNKNOWN
  3. PRILOSEC OTC [Suspect]
     Dosage: 1 TABLET 1/DAY
     Route: 048
  4. ADVAIR DISKUS 100/50 [Concomitant]
     Dosage: UNKNOWN
  5. PRILOSEC [Suspect]
     Dosage: UNKNOWN
     Route: 048
  6. SPIRIVA [Concomitant]
     Dosage: UNKNOWN

REACTIONS (2)
  - INCORRECT DRUG ADMINISTRATION DURATION [None]
  - HERNIA PAIN [None]
